FAERS Safety Report 5933512-X (Version None)
Quarter: 2008Q4

REPORT INFORMATION
  Report Type: 
  Country: None (occurrence: None)
  Receive Date: 20081028
  Receipt Date: 20081028
  Transmission Date: 20090506
  Serious: Yes (Hospitalization)
  Sender: FDA-Public Use
  Company Number: None

PATIENT
  Age: 64 Year
  Sex: Female
  Weight: 126.1 kg

DRUGS (3)
  1. TRAZODONE HCL [Suspect]
  2. LEXAPRO [Suspect]
  3. AZILECT [Suspect]

REACTIONS (6)
  - ELECTROCARDIOGRAM QT PROLONGED [None]
  - HYPERMETABOLISM [None]
  - HYPERTHERMIA [None]
  - SEROTONIN SYNDROME [None]
  - TORSADE DE POINTES [None]
  - VENTRICULAR TACHYCARDIA [None]
